FAERS Safety Report 7803582-2 (Version None)
Quarter: 2011Q4

REPORT INFORMATION
  Report Type: 
  Country: None (occurrence: None)
  Receive Date: 20111009
  Receipt Date: 20110926
  Transmission Date: 20120403
  Serious: Yes (Other)
  Sender: FDA-Public Use
  Company Number: US-ELI_LILLY_AND_COMPANY-US201107002946

PATIENT
  Sex: Female

DRUGS (16)
  1. CHOLESTYRAMINE [Concomitant]
     Indication: DIARRHOEA
     Dosage: 1 DF, BID
  2. KEPPRA [Concomitant]
     Indication: CONVULSION
     Dosage: 1500 MG, BID
  3. FORTEO [Suspect]
     Indication: OSTEOPOROSIS
     Dosage: 20 UG, QD
     Dates: start: 20110629
  4. OMEPRAZOLE [Concomitant]
     Indication: BARRETT'S OESOPHAGUS
     Dosage: 40 MG, QD
  5. ENALAPRIL MALEATE [Concomitant]
     Indication: BLOOD PRESSURE
     Dosage: 5 MG, QD
  6. LORTAB [Concomitant]
     Dosage: UNK, TID
  7. PRAVASTATIN SODIUM [Concomitant]
     Indication: BLOOD CHOLESTEROL
     Dosage: 20 MG, QD
  8. SOMA [Concomitant]
     Dosage: 1 DF, TID
  9. LYRICA [Concomitant]
     Dosage: 150 MG, TID
  10. PREMARIN [Concomitant]
     Dosage: 0.62 MG, QD
  11. FORTEO [Suspect]
     Dosage: 20 UG, QD
  12. ZONEGRAN [Concomitant]
     Indication: CONVULSION
     Dosage: 100 MG, QD
  13. FORTEO [Suspect]
     Dosage: 20 UG, QD
  14. COMBIVENT [Concomitant]
     Indication: EMPHYSEMA
     Dosage: 2 DF, TID
  15. FORTEO [Suspect]
     Dosage: 20 UG, QD
  16. FLUTICASONE PROPIONATE [Concomitant]
     Indication: SINUS DISORDER
     Dosage: 1 DF, BID

REACTIONS (6)
  - INJECTION SITE HAEMATOMA [None]
  - ACNE [None]
  - DRUG LEVEL DECREASED [None]
  - GRAND MAL CONVULSION [None]
  - INJECTION SITE HAEMORRHAGE [None]
  - DIARRHOEA [None]
